FAERS Safety Report 7392268-7 (Version None)
Quarter: 2011Q2

REPORT INFORMATION
  Report Type: 
  Country: None (occurrence: None)
  Receive Date: 20110404
  Receipt Date: 20110324
  Transmission Date: 20111010
  Serious: Yes (Other)
  Sender: FDA-Public Use
  Company Number: US-ELI_LILLY_AND_COMPANY-US201103007218

PATIENT
  Sex: Male

DRUGS (3)
  1. ATENOLOL [Concomitant]
  2. PROCARDIA [Concomitant]
  3. ZYPREXA ZYDIS [Suspect]
     Indication: PARANOIA
     Dosage: 10 MG, UNK
     Dates: start: 20110301, end: 20110324

REACTIONS (6)
  - OESOPHAGEAL STENOSIS [None]
  - PHARYNGEAL OEDEMA [None]
  - DYSPHAGIA [None]
  - OFF LABEL USE [None]
  - HYPERSENSITIVITY [None]
  - DYSPNOEA [None]
